FAERS Safety Report 8932044 (Version 2)
Quarter: 2012Q4

REPORT INFORMATION
  Report Type: 
  Country: US (occurrence: US)
  Receive Date: 20121128
  Receipt Date: 20121214
  Transmission Date: 20130627
  Serious: Yes (Death)
  Sender: FDA-Public Use
  Company Number: US-PFIZER INC-2012295422

PATIENT
  Age: 17 Year
  Sex: Male

DRUGS (1)
  1. XALKORI [Suspect]
     Indication: ANAPLASTIC LARGE CELL LYMPHOMA T- AND NULL-CELL TYPES REFRACTORY
     Dosage: 250 mg, 2x/day
     Route: 048
     Dates: start: 20121025

REACTIONS (2)
  - Disease progression [Fatal]
  - Anaplastic large cell lymphoma T- and null-cell types refractory [Fatal]
